FAERS Safety Report 18304913 (Version 2)
Quarter: 2020Q3

REPORT INFORMATION
  Report Type: Spontaneous
  Country: US (occurrence: US)
  Receive Date: 20200923
  Receipt Date: 20200925
  Transmission Date: 20201103
  Serious: No
  Sender: FDA-Public Use
  Company Number: US-PFIZER INC-2020363543

PATIENT
  Age: 56 Year
  Sex: Female
  Weight: 82.1 kg

DRUGS (1)
  1. IBRANCE [Suspect]
     Active Substance: PALBOCICLIB
     Indication: BREAST CANCER METASTATIC
     Dosage: 10 MG, DAILY (10MG A DAY)
     Dates: start: 2016

REACTIONS (2)
  - Neoplasm progression [Unknown]
  - Off label use [Unknown]
